FAERS Safety Report 23759205 (Version 2)
Quarter: 2024Q2

REPORT INFORMATION
  Report Type: Spontaneous
  Country: JP (occurrence: JP)
  Receive Date: 20240418
  Receipt Date: 20240605
  Transmission Date: 20240716
  Serious: Yes (Death, Hospitalization)
  Sender: FDA-Public Use
  Company Number: JP-KYOWAKIRIN-2024KK008243

PATIENT

DRUGS (1)
  1. DARBEPOETIN ALFA [Suspect]
     Active Substance: DARBEPOETIN ALFA
     Indication: Product used for unknown indication
     Dosage: UNK UNK, Q4WK (UNK, 1X/4 WEEKS)
     Route: 065
     Dates: end: 20240209

REACTIONS (1)
  - Disease progression [Fatal]
